FAERS Safety Report 9709866 (Version 3)
Quarter: 2014Q1

REPORT INFORMATION
  Report Type: Spontaneous
  Country: US (occurrence: US)
  Receive Date: 20131126
  Receipt Date: 20140205
  Transmission Date: 20141002
  Serious: No
  Sender: FDA-Public Use
  Company Number: US-PFIZER INC-2013336057

PATIENT
  Age: 51 Year
  Sex: Female
  Weight: 73.9 kg

DRUGS (13)
  1. LYRICA [Suspect]
     Indication: FIBROMYALGIA
     Dosage: 75 MG, 3X/DAY
     Route: 048
     Dates: start: 200907
  2. HYDROCODONE W/ACETAMINOPHEN [Concomitant]
     Dosage: 1 DF, AS NEEDED
  3. DICLOFENAC SODIUM [Concomitant]
     Dosage: 75 MG, 2X/DAY, DR TABLET, TAKE 1 TABLET, TWICE DAILY
     Route: 048
  4. ALPRAZOLAM [Concomitant]
     Dosage: 0.5 MG, THREE TIMES A DAY AND 2 TABS QHS
  5. ESTRADIOL [Concomitant]
     Dosage: 2 MG, 1 TABLET A DAY
  6. MEDROXYPROGESTERONE ACETATE [Concomitant]
     Dosage: 2.5 MG, TAB 1 EVERY DAY
  7. BACLOFEN [Concomitant]
     Dosage: 10 MG, TAB 1 THREE TIMES A DAY
  8. VENLAFAXINE HYDROCHLORIDE [Concomitant]
     Dosage: 37.5 MG, 2 TABLETS WITH FOOD ONCE DAY
  9. BENADRYL [Concomitant]
     Dosage: 25 MG, 2 TABLETS AS NEEDED AT BEDTIME
  10. LISINOPRIL [Concomitant]
     Dosage: 5 MG, 2 TAB ONCE A DAY
  11. QVAR/ACT AEROSOL SOLUTION [Concomitant]
     Dosage: 80 MCG/ ACT AEROSOL SOLUTION 1 PUFF EVERY 4-6 HOURS, AS NEEDED
  12. OMEPRAZOLE [Concomitant]
     Dosage: 20 MG, ONCE A DAY, CAPSULE DELAYED RELEASE
  13. LAXATIVES [Suspect]
     Dosage: 5 MG, 1X/DAY

REACTIONS (2)
  - Malaise [Recovered/Resolved]
  - Influenza [Recovered/Resolved]
